FAERS Safety Report 9880364 (Version 1)
Quarter: 2014Q1

REPORT INFORMATION
  Report Type: Spontaneous
  Country: US (occurrence: None)
  Receive Date: 20140206
  Receipt Date: 20140206
  Transmission Date: 20141002
  Serious: No
  Sender: FDA-Public Use
  Company Number: None

PATIENT
  Age: 82 Year
  Sex: Female
  Weight: 72.58 kg

DRUGS (18)
  1. CEPHALEXIN [Suspect]
     Indication: LIMB OPERATION
     Route: 048
     Dates: start: 20130910, end: 20130916
  2. ATENOLOL [Concomitant]
  3. AMLODIPINE BESILATE [Concomitant]
  4. PRADAXA [Concomitant]
  5. MULTIPLE VITAMIN 1 A DAY WOMEN [Concomitant]
  6. IRON [Concomitant]
  7. POT [Concomitant]
  8. MAGNESIUM [Concomitant]
  9. B12 SHOT [Concomitant]
  10. ATORVASTATIN [Concomitant]
  11. CREAMS [Concomitant]
  12. TRIAMCINOLONE [Concomitant]
  13. 50 BETA METHASONE [Concomitant]
  14. POTASSIUM GLUCONATE [Concomitant]
  15. L-LYSINE [Concomitant]
  16. BIOTIN [Concomitant]
  17. GLOBETASOL PROPIONAT [Concomitant]
  18. GOLD BOND DIABETIC [Concomitant]

REACTIONS (1)
  - Skin discolouration [None]
